FAERS Safety Report 10015565 (Version 2)
Quarter: 2014Q3

REPORT INFORMATION
  Report Type: Spontaneous
  Country: IE (occurrence: IE)
  Receive Date: 20140317
  Receipt Date: 20140903
  Transmission Date: 20150326
  Serious: Yes (Hospitalization)
  Sender: FDA-Public Use
  Company Number: US-ASTRAZENECA-2014SE17857

PATIENT
  Age: 142 Day
  Sex: Male

DRUGS (7)
  1. SYNAGIS [Suspect]
     Active Substance: PALIVIZUMAB
     Indication: PREMATURE BABY
     Route: 030
     Dates: start: 20140207, end: 20140207
  2. SYNAGIS [Suspect]
     Active Substance: PALIVIZUMAB
     Indication: PREMATURE BABY
     Route: 030
     Dates: start: 20140307, end: 20140307
  3. SYNAGIS [Suspect]
     Active Substance: PALIVIZUMAB
     Indication: PREMATURE BABY
     Route: 030
  4. GALFER [Concomitant]
     Active Substance: IRON
  5. BCG [Concomitant]
     Active Substance: BCG VACCINE
  6. ABIDEC [Concomitant]
  7. FOLIC ACID. [Concomitant]
     Active Substance: FOLIC ACID

REACTIONS (2)
  - Erythema [Unknown]
  - Feeding disorder of infancy or early childhood [Recovering/Resolving]

NARRATIVE: CASE EVENT DATE: 20140406
